FAERS Safety Report 7725919-5 (Version None)
Quarter: 2011Q3

REPORT INFORMATION
  Report Type: 
  Country: None (occurrence: None)
  Receive Date: 20110902
  Receipt Date: 20110823
  Transmission Date: 20111222
  Serious: Yes (Hospitalization)
  Sender: FDA-Public Use
  Company Number: KR-PURDUE-MAG-2011-0001605

PATIENT
  Sex: Female

DRUGS (3)
  1. OXYCODONE HCL [Suspect]
     Indication: PAIN
     Dosage: 10 MG, DAILY
     Route: 048
     Dates: start: 20101020, end: 20101102
  2. OXYCODONE HCL [Suspect]
     Indication: ANALGESIC THERAPY
     Dosage: 30 MG, UNK
     Route: 048
     Dates: start: 20100917, end: 20100926
  3. LYRICA [Concomitant]
     Indication: ANALGESIC THERAPY
     Dosage: 600 MG, UNK
     Route: 048
     Dates: start: 20100917

REACTIONS (2)
  - LOCALISED INFECTION [None]
  - SUBMANDIBULAR MASS [None]
